FAERS Safety Report 5194413-0 (Version None)
Quarter: 2006Q4

REPORT INFORMATION
  Report Type: 
  Country: None (occurrence: None)
  Receive Date: 20061222
  Receipt Date: 20061214
  Transmission Date: 20070319
  Serious: Yes (Hospitalization)
  Sender: FDA-Public Use
  Company Number: 233943K06USA

PATIENT
  Age: 47 Year
  Sex: Female
  Weight: 92.0802 kg

DRUGS (5)
  1. REBIF [Suspect]
     Indication: MULTIPLE SCLEROSIS
     Dosage: 44 MCG, 3 IN 1 WEEKS, SUBCUTANEOUS
     Route: 058
     Dates: start: 20060418, end: 20060608
  2. RELPAX (ELETRIPTAN HYDROBROMIDE) [Concomitant]
  3. XANAX [Concomitant]
  4. TOPAMAX [Concomitant]
  5. EFFEXOR XR [Concomitant]

REACTIONS (3)
  - ANXIETY [None]
  - DEPRESSION [None]
  - SUICIDAL IDEATION [None]
